FAERS Safety Report 11463969 (Version 1)
Quarter: 2015Q3

REPORT INFORMATION
  Report Type: Spontaneous
  Country: US (occurrence: US)
  Receive Date: 20150831
  Receipt Date: 20150831
  Transmission Date: 20151125
  Serious: No
  Sender: FDA-Public Use
  Company Number: US-ELI_LILLY_AND_COMPANY-US201105007710

PATIENT
  Sex: Female

DRUGS (4)
  1. SYNTHROID [Concomitant]
     Active Substance: LEVOTHYROXINE SODIUM
  2. CYMBALTA [Suspect]
     Active Substance: DULOXETINE HYDROCHLORIDE
     Dosage: 60 MG, QD
  3. CYMBALTA [Suspect]
     Active Substance: DULOXETINE HYDROCHLORIDE
     Indication: FIBROMYALGIA
     Dosage: UNK UNK, QD
  4. LEVOTHYROXINE SODIUM. [Concomitant]
     Active Substance: LEVOTHYROXINE SODIUM

REACTIONS (5)
  - Hypothyroidism [Unknown]
  - Dry skin [Unknown]
  - Nervousness [Unknown]
  - Feeling abnormal [Not Recovered/Not Resolved]
  - Fatigue [Not Recovered/Not Resolved]
